FAERS Safety Report 5508281-8 (Version None)
Quarter: 2007Q4

REPORT INFORMATION
  Report Type: 
  Country: None (occurrence: None)
  Receive Date: 20071106
  Receipt Date: 20071016
  Transmission Date: 20080405
  Serious: No
  Sender: FDA-Public Use
  Company Number: US-BOEHRINGER INGELHEIM PHARMACEUTICALS, INC.-2007-BP-18718BP

PATIENT
  Age: 75 Year
  Sex: Male
  Weight: 93 kg

DRUGS (3)
  1. FLOMAX [Suspect]
     Indication: POLLAKIURIA
     Dates: start: 20070108, end: 20070716
  2. FLOMAX [Suspect]
     Indication: BENIGN PROSTATIC HYPERPLASIA
  3. FLOMAX [Suspect]
     Indication: NOCTURIA

REACTIONS (4)
  - DRY MOUTH [None]
  - DYSPHAGIA [None]
  - DYSPNOEA [None]
  - NASAL DRYNESS [None]
